FAERS Safety Report 13928728 (Version 1)
Quarter: 2017Q3

REPORT INFORMATION
  Report Type: Spontaneous
  Country: IN (occurrence: IN)
  Receive Date: 20170901
  Receipt Date: 20170901
  Transmission Date: 20171127
  Serious: Yes (Life-Threatening, Other)
  Sender: FDA-Public Use
  Company Number: IN-TORRENT-00001330

PATIENT
  Age: 57 Year
  Sex: Male

DRUGS (3)
  1. QUETIAPINE. [Suspect]
     Active Substance: QUETIAPINE
  2. ESCITALOPRAM [Suspect]
     Active Substance: ESCITALOPRAM OXALATE
  3. AMLODIPINE [Concomitant]
     Active Substance: AMLODIPINE BESYLATE

REACTIONS (3)
  - Myxoedema coma [Recovering/Resolving]
  - Condition aggravated [Recovering/Resolving]
  - Hypothyroidism [Recovering/Resolving]
